FAERS Safety Report 11548584 (Version 1)
Quarter: 2015Q3

REPORT INFORMATION
  Report Type: Spontaneous
  Country: US (occurrence: US)
  Receive Date: 20150903
  Receipt Date: 20150903
  Transmission Date: 20151125
  Serious: No
  Sender: FDA-Public Use
  Company Number: US-ELI_LILLY_AND_COMPANY-US201303000946

PATIENT
  Age: 44 Year
  Sex: Female
  Weight: 63.49 kg

DRUGS (2)
  1. HUMALOG [Suspect]
     Active Substance: INSULIN LISPRO
     Indication: TYPE 1 DIABETES MELLITUS
     Route: 058
  2. APIDRA [Concomitant]
     Active Substance: INSULIN GLULISINE

REACTIONS (3)
  - Hypoglycaemia [Unknown]
  - Psoriatic arthropathy [Not Recovered/Not Resolved]
  - Blood glucose decreased [Unknown]

NARRATIVE: CASE EVENT DATE: 20130211
